FAERS Safety Report 15170793 (Version 1)
Quarter: 2018Q3

REPORT INFORMATION
  Report Type: Report from Study
  Country: US (occurrence: US)
  Receive Date: 20180720
  Receipt Date: 20180720
  Transmission Date: 20181010
  Serious: Yes (Other)
  Sender: FDA-Public Use
  Company Number: US-AMGEN-USASL2018096682

PATIENT
  Sex: Female

DRUGS (4)
  1. FOSAMAX [Concomitant]
     Active Substance: ALENDRONATE SODIUM
     Dosage: UNK, QWK
  2. VITAMIN D [Concomitant]
     Active Substance: CHOLECALCIFEROL
     Dosage: UNK
  3. PROLIA [Suspect]
     Active Substance: DENOSUMAB
     Indication: OSTEOPOROSIS
     Dosage: UNK
     Route: 065
  4. CALCIUM [Concomitant]
     Active Substance: CALCIUM
     Dosage: UNK

REACTIONS (4)
  - Osteonecrosis of jaw [Unknown]
  - Contusion [Unknown]
  - Gastrooesophageal reflux disease [Unknown]
  - Jaw fracture [Unknown]
